FAERS Safety Report 4763128-2 (Version None)
Quarter: 2005Q3

REPORT INFORMATION
  Report Type: 
  Country: None (occurrence: None)
  Receive Date: 20050826
  Receipt Date: 20041209
  Transmission Date: 20060218
  Serious: Yes (Hospitalization, Other)
  Sender: FDA-Public Use
  Company Number: USA-2004-0014913

PATIENT
  Age: 43 Year
  Sex: Female

DRUGS (8)
  1. OXYCONTIN [Suspect]
     Indication: PAIN
     Dosage: 20 MG
     Dates: start: 20030101
  2. PERCOCET [Concomitant]
  3. GABITRIL [Concomitant]
  4. FLEXERIL [Concomitant]
  5. ZELNORM [Concomitant]
  6. VITAMIN B-12 [Concomitant]
  7. ZOLOFT [Concomitant]
  8. CARAFATE [Concomitant]

REACTIONS (23)
  - ABDOMINAL PAIN UPPER [None]
  - ANXIETY [None]
  - BACK PAIN [None]
  - BRONCHITIS [None]
  - CONSTIPATION [None]
  - COUGH [None]
  - DELUSIONAL DISORDER, UNSPECIFIED TYPE [None]
  - DEPRESSION [None]
  - DRUG DEPENDENCE [None]
  - DRUG WITHDRAWAL SYNDROME [None]
  - FEELING ABNORMAL [None]
  - GASTROOESOPHAGEAL REFLUX DISEASE [None]
  - HEADACHE [None]
  - INADEQUATE ANALGESIA [None]
  - INSOMNIA [None]
  - NASAL CONGESTION [None]
  - NAUSEA [None]
  - NERVOUSNESS [None]
  - OBSESSIVE-COMPULSIVE DISORDER [None]
  - PARANOIA [None]
  - PEPTIC ULCER [None]
  - PRURITUS [None]
  - RHONCHI [None]
